FAERS Safety Report 16453555 (Version 1)
Quarter: 2019Q2

REPORT INFORMATION
  Report Type: Spontaneous
  Country: CA (occurrence: CA)
  Receive Date: 20190619
  Receipt Date: 20190619
  Transmission Date: 20190711
  Serious: Yes (Other)
  Sender: FDA-Public Use
  Company Number: CA-PFIZER INC-2019255294

PATIENT
  Age: 30 Year
  Sex: Female

DRUGS (1)
  1. EPINEPHRINE. [Suspect]
     Active Substance: EPINEPHRINE
     Indication: HAEMOSTASIS
     Dosage: 1 ML, SINGLE
     Route: 050

REACTIONS (4)
  - Product use issue [Unknown]
  - Heart rate increased [Unknown]
  - Stress cardiomyopathy [Unknown]
  - Blood pressure systolic increased [Unknown]
